FAERS Safety Report 8925804 (Version 2)
Quarter: 2013Q1

REPORT INFORMATION
  Report Type: Spontaneous
  Country: DE (occurrence: DE)
  Receive Date: 20121126
  Receipt Date: 20130221
  Transmission Date: 20140127
  Serious: Yes (Death, Hospitalization, Other)
  Sender: FDA-Public Use
  Company Number: DE-ELI_LILLY_AND_COMPANY-DE201211004674

PATIENT
  Age: 84 Year
  Sex: Female

DRUGS (2)
  1. FORSTEO [Suspect]
     Indication: OSTEOPOROSIS
     Dosage: UNK UNK, QD
     Route: 058
     Dates: start: 20120223
  2. MELATONIN [Concomitant]

REACTIONS (6)
  - Cardiac disorder [Fatal]
  - Pneumonia [Fatal]
  - Epilepsy [Unknown]
  - Upper limb fracture [Not Recovered/Not Resolved]
  - Facial bones fracture [Not Recovered/Not Resolved]
  - Fall [Not Recovered/Not Resolved]
